FAERS Safety Report 5006386-1 (Version None)
Quarter: 2006Q2

REPORT INFORMATION
  Report Type: 
  Country: None (occurrence: None)
  Receive Date: 20060519
  Receipt Date: 20060509
  Transmission Date: 20061013
  Serious: Yes (Hospitalization)
  Sender: FDA-Public Use
  Company Number: PHRM2006FR01542

PATIENT
  Age: 25 Year
  Sex: Male

DRUGS (7)
  1. CLOZAPINE [Suspect]
     Indication: SCHIZOPHRENIA
     Dosage: 200 MG, BID
     Route: 048
  2. XANAX [Concomitant]
  3. PENTOTHAL [Concomitant]
     Indication: ANAESTHESIA
  4. BARBITURATES [Concomitant]
     Indication: ANAESTHESIA
  5. ATRACURIUM BESYLATE [Concomitant]
     Indication: ANAESTHESIA
  6. DESFLURANE [Suspect]
     Indication: ANAESTHESIA
  7. SUFENTANIL CITRATE [Concomitant]
     Indication: ANAESTHESIA

REACTIONS (4)
  - DELAYED RECOVERY FROM ANAESTHESIA [None]
  - DRUG INTERACTION [None]
  - FALL [None]
  - FEMORAL NECK FRACTURE [None]
